FAERS Safety Report 4528054-2 (Version None)
Quarter: 2004Q4

REPORT INFORMATION
  Report Type: 
  Country: None (occurrence: None)
  Receive Date: 20041129
  Receipt Date: 20040914
  Transmission Date: 20050328
  Serious: Yes (Hospitalization, Other)
  Sender: FDA-Public Use
  Company Number: US_0409105472

PATIENT
  Age: 37 Year
  Sex: Male
  Weight: 95 kg

DRUGS (9)
  1. ZYPREXA [Suspect]
     Indication: ABNORMAL BEHAVIOUR
     Dates: start: 20040722, end: 20040801
  2. PHENYTEK (PHENYTOIN) [Concomitant]
  3. ZONEGRAN [Concomitant]
  4. ESCITALOPRAM [Concomitant]
  5. LORAZEPAM [Concomitant]
  6. DIASTAT [Concomitant]
  7. ARICEPT [Concomitant]
  8. CLORAZEPATE DIPOTASSIUM [Concomitant]
  9. ZOCOR [Concomitant]

REACTIONS (2)
  - ANTICONVULSANT DRUG LEVEL BELOW THERAPEUTIC [None]
  - CONVULSION [None]
